FAERS Safety Report 4597755-2 (Version None)
Quarter: 2005Q1

REPORT INFORMATION
  Report Type: 
  Country: None (occurrence: None)
  Receive Date: 20050125
  Receipt Date: 20040928
  Transmission Date: 20050727
  Serious: No
  Sender: FDA-Public Use
  Company Number: USA040876721

PATIENT
  Age: 78 Year
  Sex: Female

DRUGS (7)
  1. FORTEO [Suspect]
     Indication: OSTEOPOROSIS
     Dosage: 20 UG IN THE MORNING
     Dates: start: 20040811
  2. EVISTA [Suspect]
     Indication: OSTEOPOROSIS
     Dosage: 60 MG DAY
     Dates: end: 20040811
  3. AMITRIPTYLINE HCL [Concomitant]
  4. LESCOL [Concomitant]
  5. VITAMINS NOS [Concomitant]
  6. FOSAMAX (ALANDRONATE SODIUM) [Concomitant]
  7. PREMARIN [Concomitant]

REACTIONS (8)
  - ARTHRALGIA [None]
  - BONE DENSITY DECREASED [None]
  - DIZZINESS [None]
  - DRUG INEFFECTIVE [None]
  - INSOMNIA [None]
  - MUSCLE SPASMS [None]
  - PAIN IN EXTREMITY [None]
  - SENSORY DISTURBANCE [None]
